FAERS Safety Report 7224331-5 (Version None)
Quarter: 2011Q1

REPORT INFORMATION
  Report Type: 
  Country: None (occurrence: None)
  Receive Date: 20110113
  Receipt Date: 20110107
  Transmission Date: 20110831
  Serious: Yes (Other)
  Sender: FDA-Public Use
  Company Number: DE-BRISTOL-MYERS SQUIBB COMPANY-15475601

PATIENT
  Sex: Female

DRUGS (3)
  1. TRUVADA [Suspect]
     Indication: HIV INFECTION
     Dates: start: 20091201
  2. NORVIR [Suspect]
     Indication: HIV INFECTION
     Dates: start: 20091201
  3. REYATAZ [Suspect]
     Indication: HIV INFECTION
     Dates: start: 20091201

REACTIONS (1)
  - CUBITAL TUNNEL SYNDROME [None]
